FAERS Safety Report 8301708-8 (Version None)
Quarter: 2012Q2

REPORT INFORMATION
  Report Type: 
  Country: None (occurrence: None)
  Receive Date: 20120417
  Receipt Date: 20120402
  Transmission Date: 20120825
  Serious: Yes (Hospitalization)
  Sender: FDA-Public Use
  Company Number: B0792230A

PATIENT
  Age: 58 Year
  Sex: Male

DRUGS (3)
  1. TIZANIDINE HCL [Suspect]
     Indication: MUSCLE RELAXANT THERAPY
  2. CEFUROXIME SODIUM [Suspect]
     Indication: PNEUMONIA
  3. LEVOFLOXACIN [Concomitant]

REACTIONS (6)
  - RASH PAPULAR [None]
  - PRURITUS [None]
  - TOXIC SKIN ERUPTION [None]
  - LYMPHOCYTE STIMULATION TEST POSITIVE [None]
  - RASH ERYTHEMATOUS [None]
  - TRICHOPHYTOSIS [None]
